FAERS Safety Report 4976420-3 (Version None)
Quarter: 2006Q2

REPORT INFORMATION
  Report Type: 
  Country: None (occurrence: None)
  Receive Date: 20060412
  Receipt Date: 20060331
  Transmission Date: 20061013
  Serious: Yes (Hospitalization)
  Sender: FDA-Public Use
  Company Number: 06-0044PO

PATIENT
  Age: 21 Year
  Sex: Female

DRUGS (2)
  1. PONSTEL [Suspect]
     Dosage: 5 G, ONCE, ORAL
     Route: 048
     Dates: start: 20060222
  2. AMOXICILLIN + CLAVULANATE POTASSIUM [Suspect]
     Dosage: 12.75 G, ONCE, ORAL
     Route: 048
     Dates: start: 20060222

REACTIONS (2)
  - INCORRECT DOSE ADMINISTERED [None]
  - SUICIDE ATTEMPT [None]
